FAERS Safety Report 19110449 (Version 1)
Quarter: 2021Q2

REPORT INFORMATION
  Report Type: Spontaneous
  Country: US (occurrence: GB)
  Receive Date: 20210409
  Receipt Date: 20210409
  Transmission Date: 20210717
  Serious: No
  Sender: FDA-Public Use
  Company Number: GB-BLUEPRINT MEDICINES CORPORATION-SP-GB-2021-000409

PATIENT
  Sex: Male

DRUGS (1)
  1. AYVAKYT [Suspect]
     Active Substance: AVAPRITINIB
     Indication: SYSTEMIC MASTOCYTOSIS
     Route: 048

REACTIONS (5)
  - Platelet count abnormal [Unknown]
  - Periorbital oedema [Unknown]
  - Off label use [Unknown]
  - Therapeutic product effective for unapproved indication [Unknown]
  - Visual impairment [Unknown]
